FAERS Safety Report 10143239 (Version 1)
Quarter: 2014Q2

REPORT INFORMATION
  Report Type: Spontaneous
  Country: US (occurrence: US)
  Receive Date: 20140430
  Receipt Date: 20140430
  Transmission Date: 20141212
  Serious: No
  Sender: FDA-Public Use
  Company Number: US-009507513-1404USA014504

PATIENT
  Age: 41 Year
  Sex: Female

DRUGS (1)
  1. NUVARING [Suspect]
     Indication: CONTRACEPTION
     Dosage: 1 RING FOR 3 WEEKS
     Route: 067
     Dates: start: 2013

REACTIONS (5)
  - Back pain [Unknown]
  - Muscle spasms [Unknown]
  - Headache [Unknown]
  - Dizziness [Unknown]
  - Menstrual disorder [Unknown]
